FAERS Safety Report 8984203 (Version 1)
Quarter: 2012Q4

REPORT INFORMATION
  Report Type: 
  Country: US (occurrence: US)
  Receive Date: 20121226
  Receipt Date: 20121226
  Transmission Date: 20130627
  Serious: No
  Sender: FDA-Public Use
  Company Number: US-BAYER-2012-134628

PATIENT
  Age: 38 Year
  Sex: Female
  Weight: 136.5 kg

DRUGS (1)
  1. ALEVE CAPLET/TABLET,MIDOL EXTENDED RELIEF CAPLET [Suspect]
     Dosage: 2 DF, UNK
     Route: 048

REACTIONS (4)
  - Incorrect dose administered [None]
  - Expired drug administered [None]
  - Abdominal discomfort [Recovered/Resolved]
  - Dizziness [Recovered/Resolved]
